FAERS Safety Report 23728956 (Version 2)
Quarter: 2024Q2

REPORT INFORMATION
  Report Type: Report from Study
  Country: CN (occurrence: CN)
  Receive Date: 20240410
  Receipt Date: 20240424
  Transmission Date: 20240716
  Serious: Yes (Hospitalization)
  Sender: FDA-Public Use
  Company Number: CN-ROCHE-3538760

PATIENT
  Age: 68 Year
  Sex: Female

DRUGS (3)
  1. GAVRETO [Suspect]
     Active Substance: PRALSETINIB
     Indication: Non-small cell lung cancer
     Route: 048
     Dates: start: 2022
  2. GAVRETO [Suspect]
     Active Substance: PRALSETINIB
     Route: 048
  3. GAVRETO [Suspect]
     Active Substance: PRALSETINIB
     Dosage: SUBSEQUENT DOSE: 100 MG
     Route: 048

REACTIONS (5)
  - White blood cell count decreased [Recovered/Resolved]
  - Lymphocyte count decreased [Recovered/Resolved]
  - Mouth ulceration [Recovering/Resolving]
  - Blood pressure increased [Recovering/Resolving]
  - Abdominal discomfort [Recovering/Resolving]

NARRATIVE: CASE EVENT DATE: 20220101
